FAERS Safety Report 15246283 (Version 1)
Quarter: 2018Q3

REPORT INFORMATION
  Report Type: Spontaneous
  Country: US (occurrence: US)
  Receive Date: 20180806
  Receipt Date: 20180806
  Transmission Date: 20181010
  Serious: Yes (Other)
  Sender: FDA-Public Use
  Company Number: US-SA-2018SA145726

PATIENT
  Age: 78 Year
  Sex: Male
  Weight: 80.8 kg

DRUGS (1)
  1. AVAPRO [Suspect]
     Active Substance: IRBESARTAN
     Dosage: UNK, UNK

REACTIONS (17)
  - Mitral valve replacement [Unknown]
  - Myelofibrosis [Unknown]
  - Pain in extremity [Unknown]
  - Cytopenia [Unknown]
  - Malaise [Unknown]
  - Overdose [Unknown]
  - Chronic kidney disease [Unknown]
  - Gait disturbance [Unknown]
  - Loss of consciousness [Unknown]
  - Bone marrow failure [Unknown]
  - Neck pain [Unknown]
  - Asthenia [Unknown]
  - Haemoglobin decreased [Unknown]
  - Dyspnoea [Unknown]
  - Skin discolouration [Unknown]
  - Dysstasia [Unknown]
  - Musculoskeletal pain [Unknown]
